FAERS Safety Report 7477869-X (Version None)
Quarter: 2011Q2

REPORT INFORMATION
  Report Type: 
  Country: None (occurrence: None)
  Receive Date: 20110511
  Receipt Date: 20110511
  Transmission Date: 20111010
  Serious: Yes (Other)
  Sender: FDA-Public Use
  Company Number: None

PATIENT
  Sex: Female

DRUGS (1)
  1. ENBREL [Suspect]
     Indication: PSORIASIS
     Dosage: 50 MG ONCE/WEEK SUBCUTANEOUSLY
     Route: 058
     Dates: start: 20110409, end: 20110508

REACTIONS (7)
  - FATIGUE [None]
  - MOVEMENT DISORDER [None]
  - RASH ERYTHEMATOUS [None]
  - PSORIASIS [None]
  - HEADACHE [None]
  - CONDITION AGGRAVATED [None]
  - QUALITY OF LIFE DECREASED [None]
